FAERS Safety Report 5821577-5 (Version None)
Quarter: 2008Q3

REPORT INFORMATION
  Report Type: 
  Country: None (occurrence: None)
  Receive Date: 20080724
  Receipt Date: 20080715
  Transmission Date: 20090109
  Serious: Yes (Hospitalization)
  Sender: FDA-Public Use
  Company Number: PHHY2008US13992

PATIENT
  Sex: Female

DRUGS (1)
  1. ERL 080A ERL+TAB [Suspect]
     Indication: RENAL TRANSPLANT
     Dosage: 1440 MG/DAY
     Route: 048
     Dates: start: 20070807, end: 20080609

REACTIONS (3)
  - CYTOMEGALOVIRUS ANTIGEN POSITIVE [None]
  - PHLEBITIS SUPERFICIAL [None]
  - WHITE BLOOD CELL COUNT DECREASED [None]
